FAERS Safety Report 7650556-0 (Version None)
Quarter: 2011Q3

REPORT INFORMATION
  Report Type: 
  Country: None (occurrence: None)
  Receive Date: 20110802
  Receipt Date: 20110720
  Transmission Date: 20111222
  Serious: Yes (Death)
  Sender: FDA-Public Use
  Company Number: GB-ALEXION PHARMACEUTICALS INC.-A201100972

PATIENT
  Sex: Female

DRUGS (1)
  1. SOLIRIS [Suspect]
     Indication: MALIGNANT ATROPHIC PAPULOSIS
     Dosage: UNK
     Route: 042
     Dates: start: 20110101, end: 20110603

REACTIONS (1)
  - GASTROINTESTINAL NECROSIS [None]
